FAERS Safety Report 6045146-X (Version None)
Quarter: 2009Q1

REPORT INFORMATION
  Report Type: 
  Country: None (occurrence: None)
  Receive Date: 20090121
  Receipt Date: 20090115
  Transmission Date: 20090719
  Serious: Yes (Hospitalization)
  Sender: FDA-Public Use
  Company Number: FR-ASTRAZENECA-2009CG00193

PATIENT
  Age: 52 Year
  Sex: Male

DRUGS (3)
  1. DIPRIVAN [Suspect]
     Indication: ANAESTHESIA
     Route: 065
     Dates: start: 20070212, end: 20070212
  2. CELOCURIN [Suspect]
     Indication: ANAESTHESIA
     Dates: start: 20070212, end: 20070212
  3. SUFENTANIL [Suspect]
     Indication: ANAESTHESIA
     Dates: start: 20070212, end: 20070212

REACTIONS (4)
  - ANAPHYLACTOID REACTION [None]
  - BRONCHOSPASM [None]
  - ERYTHEMA [None]
  - OXYGEN SATURATION DECREASED [None]
